FAERS Safety Report 7592035-5 (Version None)
Quarter: 2011Q3

REPORT INFORMATION
  Report Type: 
  Country: None (occurrence: None)
  Receive Date: 20110705
  Receipt Date: 20110705
  Transmission Date: 20111222
  Serious: Yes (Hospitalization)
  Sender: FDA-Public Use
  Company Number: None

PATIENT
  Sex: Female
  Weight: 95.4 kg

DRUGS (7)
  1. HERCEPTIN [Suspect]
     Dosage: 3184 MG
     Dates: end: 20110602
  2. CLEOCIN T [Concomitant]
  3. PRILOSEC [Concomitant]
  4. TAXOL [Suspect]
     Dosage: 3782 MG
     Dates: end: 20110602
  5. ATIVAN [Concomitant]
  6. ZANTAC [Concomitant]
  7. ZOLOFT [Concomitant]

REACTIONS (6)
  - ASPARTATE AMINOTRANSFERASE INCREASED [None]
  - WHEEZING [None]
  - PNEUMONIA [None]
  - NEUTROPENIA [None]
  - PYREXIA [None]
  - ALANINE AMINOTRANSFERASE INCREASED [None]
